FAERS Safety Report 25735901 (Version 1)
Quarter: 2025Q3

REPORT INFORMATION
  Report Type: Report from Study
  Country: CN (occurrence: CN)
  Receive Date: 20250828
  Receipt Date: 20250828
  Transmission Date: 20251021
  Serious: Yes (Other)
  Sender: NOVARTIS
  Company Number: CN-002147023-NVSC2024CN243702

PATIENT

DRUGS (2)
  1. LEQVIO [Suspect]
     Active Substance: INCLISIRAN SODIUM
     Indication: Hyperlipidaemia
     Route: 058
     Dates: start: 20241119, end: 20241119
  2. LEQVIO [Suspect]
     Active Substance: INCLISIRAN SODIUM
     Route: 058
     Dates: start: 20250428, end: 20250428

REACTIONS (10)
  - Blood triglycerides increased [Unknown]
  - Blood cholesterol decreased [Unknown]
  - Apolipoprotein B decreased [Unknown]
  - Apolipoprotein B/Apolipoprotein A-1 ratio [Unknown]
  - High density lipoprotein decreased [Unknown]
  - Low density lipoprotein decreased [Unknown]
  - Alanine aminotransferase increased [Unknown]
  - Aspartate aminotransferase increased [Unknown]
  - Blood cholesterol increased [Unknown]
  - Drug ineffective [Unknown]

NARRATIVE: CASE EVENT DATE: 20241220
